FAERS Safety Report 5009182-4 (Version None)
Quarter: 2006Q2

REPORT INFORMATION
  Report Type: 
  Country: None (occurrence: None)
  Receive Date: 20060519
  Receipt Date: 20060509
  Transmission Date: 20061013
  Serious: Yes (Hospitalization, Disabling, Other)
  Sender: FDA-Public Use
  Company Number: 2006MP000594

PATIENT
  Age: 70 Year
  Sex: Female
  Weight: 65 kg

DRUGS (1)
  1. GLIADEL [Suspect]
     Indication: GLIOBLASTOMA
     Dosage: 38.5 MG;X1;ICER
     Dates: start: 20060124, end: 20060124

REACTIONS (4)
  - BACTERIAL INFECTION [None]
  - BRAIN ABSCESS [None]
  - EMPYEMA [None]
  - SIMPLE PARTIAL SEIZURES [None]
